FAERS Safety Report 5825133-4 (Version None)
Quarter: 2008Q3

REPORT INFORMATION
  Report Type: 
  Country: None (occurrence: None)
  Receive Date: 20080729
  Receipt Date: 20080717
  Transmission Date: 20090109
  Serious: Yes (Hospitalization, Other)
  Sender: FDA-Public Use
  Company Number: TW-PURDUE-DEU_2008_0004441

PATIENT
  Age: 37 Year
  Sex: Male

DRUGS (3)
  1. MORPHINE [Suspect]
     Indication: DRUG ABUSE
     Route: 042
  2. AMPHETAMINE SULFATE [Suspect]
     Indication: DRUG ABUSE
     Route: 065
  3. BENZODIAZEPINE DERIVATIVES [Suspect]
     Indication: DRUG ABUSE
     Route: 065

REACTIONS (2)
  - DRUG ABUSE [None]
  - STAPHYLOCOCCAL MEDIASTINITIS [None]
